FAERS Safety Report 5447005-X (Version None)
Quarter: 2007Q3

REPORT INFORMATION
  Report Type: 
  Country: None (occurrence: None)
  Receive Date: 20070810
  Receipt Date: 20060921
  Transmission Date: 20080115
  Serious: Yes (Other)
  Sender: FDA-Public Use
  Company Number: A03200605865

PATIENT
  Age: 69 Year
  Sex: Male

DRUGS (5)
  1. UROXATRAL [Suspect]
     Dosage: ORAL
     Route: 048
     Dates: start: 20060901, end: 20060901
  2. UROXATRAL [Suspect]
  3. UROXATRAL [Suspect]
  4. UROXATRAL [Suspect]
  5. UROXATRAL [Suspect]

REACTIONS (2)
  - DIZZINESS [None]
  - SYNCOPE [None]
